FAERS Safety Report 9801795 (Version 1)
Quarter: 2014Q1

REPORT INFORMATION
  Report Type: Spontaneous
  Country: JP (occurrence: JP)
  Receive Date: 20140107
  Receipt Date: 20140107
  Transmission Date: 20141002
  Serious: Yes (Life-Threatening, Other)
  Sender: FDA-Public Use
  Company Number: JP-GLAXOSMITHKLINE-B0957605A

PATIENT
  Age: 18 Year
  Sex: Female

DRUGS (1)
  1. ALKERAN [Suspect]
     Indication: NEUROBLASTOMA
     Route: 042
     Dates: start: 19960820

REACTIONS (7)
  - Cataract [Unknown]
  - Thyroid cancer [Unknown]
  - Ovarian failure [Unknown]
  - Irritable bowel syndrome [Unknown]
  - Dwarfism [Unknown]
  - Osteochondroma [Unknown]
  - Type 2 diabetes mellitus [Unknown]
